FAERS Safety Report 6947067-4 (Version None)
Quarter: 2010Q3

REPORT INFORMATION
  Report Type: 
  Country: None (occurrence: None)
  Receive Date: 20100827
  Receipt Date: 20090825
  Transmission Date: 20110219
  Serious: No
  Sender: FDA-Public Use
  Company Number: US-ABBOTT-09P-163-0594653-00

PATIENT
  Sex: Male
  Weight: 80.358 kg

DRUGS (12)
  1. NIASPAN [Suspect]
     Indication: BLOOD TRIGLYCERIDES INCREASED
     Route: 048
  2. NIASPAN [Suspect]
     Indication: BLOOD CHOLESTEROL INCREASED
  3. LIPITOR [Concomitant]
     Indication: BLOOD CHOLESTEROL INCREASED
     Route: 048
  4. LIPITOR [Concomitant]
     Indication: BLOOD TRIGLYCERIDES INCREASED
  5. LIPITOR [Concomitant]
     Indication: LOW DENSITY LIPOPROTEIN INCREASED
  6. LIPITOR [Concomitant]
     Indication: HIGH DENSITY LIPOPROTEIN DECREASED
  7. INDURAL [Concomitant]
     Indication: TREMOR
     Route: 048
  8. VIAGRA [Concomitant]
     Indication: PRODUCT USED FOR UNKNOWN INDICATION
  9. VITAMIN B-12 [Concomitant]
     Indication: PRODUCT USED FOR UNKNOWN INDICATION
     Route: 048
  10. ASPIRIN [Concomitant]
     Indication: PRODUCT USED FOR UNKNOWN INDICATION
     Route: 048
  11. FINASTERIDE [Concomitant]
     Indication: PROSTATOMEGALY
  12. FINASTERIDE [Concomitant]
     Indication: HORMONE LEVEL ABNORMAL

REACTIONS (3)
  - BACK PAIN [None]
  - BURNING SENSATION [None]
  - DIZZINESS [None]
